FAERS Safety Report 17876085 (Version 1)
Quarter: 2020Q2

REPORT INFORMATION
  Report Type: Spontaneous
  Country: US (occurrence: US)
  Receive Date: 20200609
  Receipt Date: 20200609
  Transmission Date: 20200714
  Serious: Yes (Other)
  Sender: FDA-Public Use
  Company Number: None

PATIENT
  Age: 42 Year
  Sex: Male
  Weight: 91 kg

DRUGS (16)
  1. REMDESIVIR. [Suspect]
     Active Substance: REMDESIVIR
     Indication: COVID-19
     Route: 040
     Dates: start: 20200526, end: 20200528
  2. AMLODIPINE [Concomitant]
     Active Substance: AMLODIPINE BESYLATE
     Dates: start: 20200525, end: 20200526
  3. FAMOTIDINE. [Concomitant]
     Active Substance: FAMOTIDINE
     Dates: start: 20200525, end: 20200531
  4. GABAPENTIN. [Concomitant]
     Active Substance: GABAPENTIN
     Dates: start: 20200525, end: 20200528
  5. FENTANYL DRIP [Concomitant]
     Dates: start: 20200520, end: 20200531
  6. KETAMINE DRIP [Concomitant]
     Dates: start: 20200524, end: 20200531
  7. ASPIRIN. [Concomitant]
     Active Substance: ASPIRIN
     Dates: start: 20200520, end: 20200531
  8. INSULIN LISPRO [Concomitant]
     Active Substance: INSULIN LISPRO
     Dates: start: 20200519, end: 20200531
  9. LACTULOSE. [Concomitant]
     Active Substance: LACTULOSE
     Dates: start: 20200524
  10. ACETAMINIPHEN [Concomitant]
     Dates: start: 20200522, end: 20200526
  11. QUETIAPINE. [Concomitant]
     Active Substance: QUETIAPINE
     Dates: start: 20200524, end: 20200531
  12. LABETALOL PRN [Concomitant]
     Dates: start: 20200525, end: 20200527
  13. MIDAZOLAM DRIP [Concomitant]
     Dates: start: 20200525, end: 20200531
  14. PROPOFOL DRIP [Concomitant]
     Active Substance: PROPOFOL
     Dates: start: 20200520, end: 20200531
  15. ROCURONIUM DRIP [Concomitant]
     Dates: start: 20200524, end: 20200531
  16. ENOXAPARIN [Concomitant]
     Active Substance: ENOXAPARIN
     Dates: start: 20200519, end: 20200527

REACTIONS (2)
  - Renal impairment [None]
  - Hypertensive urgency [None]

NARRATIVE: CASE EVENT DATE: 20200527
